FAERS Safety Report 8202886-1 (Version None)
Quarter: 2012Q1

REPORT INFORMATION
  Report Type: 
  Country: None (occurrence: None)
  Receive Date: 20120312
  Receipt Date: 20120312
  Transmission Date: 20120608
  Serious: Yes (Hospitalization, Other)
  Sender: FDA-Public Use
  Company Number: None

PATIENT
  Age: 21 Year
  Sex: Female
  Weight: 90.718 kg

DRUGS (1)
  1. MIRENA [Suspect]
     Dates: start: 20050517, end: 20090423

REACTIONS (5)
  - PELVIC INFLAMMATORY DISEASE [None]
  - INTRA-ABDOMINAL HAEMORRHAGE [None]
  - INFERTILITY FEMALE [None]
  - OVARIAN CYST RUPTURED [None]
  - DYSPAREUNIA [None]
